FAERS Safety Report 9263720 (Version 5)
Quarter: 2014Q2

REPORT INFORMATION
  Report Type: Report from Study
  Country: TW (occurrence: TW)
  Receive Date: 20130430
  Receipt Date: 20140422
  Transmission Date: 20141212
  Serious: Yes (Hospitalization, Other)
  Sender: FDA-Public Use
  Company Number: PHHY2013TW039425

PATIENT
  Age: 58 Year
  Sex: Male
  Weight: 67.2 kg

DRUGS (19)
  1. AMN107 [Suspect]
     Indication: CHRONIC MYELOID LEUKAEMIA
     Dosage: 600 MG, DAILY
     Dates: start: 20110322
  2. AMN107 [Suspect]
     Dosage: 600 MG, DAILY
     Dates: start: 20110624
  3. AMN107 [Suspect]
     Dosage: 600 MG, QD
     Route: 048
     Dates: start: 20111126, end: 20130422
  4. AMN107 [Suspect]
     Dosage: 200 MG, UNK
     Dates: start: 20130422, end: 20130422
  5. AMN107 [Suspect]
     Dosage: 400 MG, UNK
     Dates: start: 20130425, end: 20130425
  6. AMN107 [Suspect]
     Dosage: 600 MG, QD
     Route: 048
     Dates: start: 20130425, end: 20131108
  7. BENZOYL PEROXIDE [Concomitant]
     Indication: FOLLICULITIS
     Dates: start: 20120801
  8. BETAMETHASONE [Concomitant]
     Indication: FOLLICULITIS
     Dates: start: 20120328, end: 20120731
  9. CLOBETASOL PROPIONATE [Concomitant]
     Indication: FOLLICULITIS
     Dates: start: 20120801
  10. DESMOPRESSIN [Concomitant]
     Indication: NEOPLASM PROSTATE
     Dates: start: 20130314
  11. DOXYCYCLINE [Concomitant]
     Indication: RASH PUSTULAR
     Dates: start: 20120801
  12. DOXYCYCLINE [Concomitant]
     Indication: TENDERNESS
  13. FLUOCINONIDE [Concomitant]
     Indication: ECZEMA
     Dates: start: 20111208, end: 20120209
  14. FLUVASTATIN [Concomitant]
     Indication: HYPERCHOLESTEROLAEMIA
     Dates: start: 20130627
  15. GENTAMICIN [Concomitant]
     Indication: FOLLICULITIS
     Dates: start: 20120328, end: 20120731
  16. PASCA [Concomitant]
     Indication: RASH PUSTULAR
     Dates: start: 20120328, end: 20120731
  17. PASCA [Concomitant]
     Indication: TENDERNESS
  18. POLYTAR [Concomitant]
     Indication: FOLLICULITIS
     Dates: start: 20120328, end: 20120731
  19. SULFISOMEZOLE [Concomitant]
     Indication: CONJUNCTIVITIS
     Dates: start: 20110520, end: 20110606

REACTIONS (16)
  - Basal ganglia stroke [Not Recovered/Not Resolved]
  - Muscular weakness [Not Recovered/Not Resolved]
  - Cerebellar syndrome [Not Recovered/Not Resolved]
  - Gait disturbance [Not Recovered/Not Resolved]
  - Basal ganglia infarction [Recovered/Resolved with Sequelae]
  - Carotid artery stenosis [Recovered/Resolved with Sequelae]
  - Arteriosclerosis [Recovered/Resolved with Sequelae]
  - Hemiparesis [Recovered/Resolved with Sequelae]
  - Thalamic infarction [Unknown]
  - Acne [Unknown]
  - Eyelid oedema [Unknown]
  - Chest pain [Unknown]
  - Dizziness [Unknown]
  - Speech disorder [Unknown]
  - Sinus tachycardia [Unknown]
  - Sinus bradycardia [Unknown]
